FAERS Safety Report 5337104-5 (Version None)
Quarter: 2007Q2

REPORT INFORMATION
  Report Type: 
  Country: None (occurrence: None)
  Receive Date: 20070529
  Receipt Date: 20070521
  Transmission Date: 20071010
  Serious: Yes (Other)
  Sender: FDA-Public Use
  Company Number: US-ASTRAZENECA-2007UW12549

PATIENT
  Age: 88 Year
  Sex: Female
  Weight: 60.3 kg

DRUGS (3)
  1. SEROQUEL [Suspect]
     Indication: DEMENTIA
     Route: 048
     Dates: start: 20061201
  2. SEROQUEL [Suspect]
     Route: 048
     Dates: start: 20070101, end: 20070405
  3. ORAL DIABETIC MEDICATION [Concomitant]
     Indication: DIABETES MELLITUS
     Route: 048

REACTIONS (6)
  - APHASIA [None]
  - DIZZINESS [None]
  - FALL [None]
  - FEEDING DISORDER [None]
  - INCONTINENCE [None]
  - SOMNOLENCE [None]
